FAERS Safety Report 18742981 (Version 1)
Quarter: 2021Q1

REPORT INFORMATION
  Report Type: Spontaneous
  Country: US (occurrence: US)
  Receive Date: 20210115
  Receipt Date: 20210115
  Transmission Date: 20210419
  Serious: No
  Sender: FDA-Public Use
  Company Number: US-TARO-2020TAR00118

PATIENT

DRUGS (1)
  1. BETAMETHASONE DIPROPIONATE CREAM USP 0.05% (AUGMENTED) [Suspect]
     Active Substance: BETAMETHASONE DIPROPIONATE
     Indication: PRURITUS
     Dosage: 0.05 %, DAILY, THIN LAYER
     Route: 061
     Dates: start: 20200121

REACTIONS (2)
  - Feeling hot [Recovered/Resolved]
  - Skin burning sensation [Recovered/Resolved]
